FAERS Safety Report 20373134 (Version 6)
Quarter: 2025Q4

REPORT INFORMATION
  Report Type: Report from Study
  Country: EU (occurrence: EU)
  Receive Date: 20220125
  Receipt Date: 20251024
  Transmission Date: 20260118
  Serious: Yes (Hospitalization, Other)
  Sender: TAKEDA
  Company Number: EU-TAKEDA-2022TUS003834

PATIENT
  Age: 77 Year
  Sex: Female

DRUGS (2)
  1. VELAGLUCERASE ALFA [Suspect]
     Active Substance: VELAGLUCERASE ALFA
     Indication: Product used for unknown indication
     Dosage: 400 INTERNATIONAL UNIT
  2. VELAGLUCERASE ALFA [Suspect]
     Active Substance: VELAGLUCERASE ALFA
     Dosage: 400 INTERNATIONAL UNIT

REACTIONS (7)
  - Injection site swelling [Recovered/Resolved]
  - Injection site vesicles [Recovered/Resolved]
  - Spinal cord compression [Not Recovered/Not Resolved]
  - Body temperature abnormal [Unknown]
  - Arthropathy [Unknown]
  - Visual impairment [Unknown]
  - Product storage error [Recovered/Resolved]

NARRATIVE: CASE EVENT DATE: 20220624
